FAERS Safety Report 10725519 (Version 1)
Quarter: 2015Q1

REPORT INFORMATION
  Report Type: Spontaneous
  Country: US (occurrence: US)
  Receive Date: 20150121
  Receipt Date: 20150121
  Transmission Date: 20150721
  Serious: No
  Sender: FDA-Public Use
  Company Number: US-GLAXOSMITHKLINE-US2014039469

PATIENT
  Age: 74 Year
  Sex: Female

DRUGS (2)
  1. ANORO ELLIPTA [Suspect]
     Active Substance: UMECLIDINIUM BROMIDE\VILANTEROL TRIFENATATE
     Indication: DYSPNOEA
     Dosage: UNK, PRN
  2. ADVAIR HFA [Suspect]
     Active Substance: FLUTICASONE PROPIONATE\SALMETEROL XINAFOATE
     Indication: DYSPNOEA
     Dosage: UNK, PRN

REACTIONS (5)
  - Throat irritation [Recovered/Resolved]
  - Irritability [Recovered/Resolved]
  - Dyspnoea [Recovered/Resolved]
  - Therapeutic response unexpected [Unknown]
  - Oropharyngeal pain [Recovered/Resolved]

NARRATIVE: CASE EVENT DATE: 20141206
